FAERS Safety Report 8951100 (Version 3)
Quarter: 2013Q1

REPORT INFORMATION
  Report Type: Spontaneous
  Country: US (occurrence: None)
  Receive Date: 20121130
  Receipt Date: 20130124
  Transmission Date: 20140127
  Serious: Yes (Hospitalization)
  Sender: FDA-Public Use
  Company Number: 201211-PR171-0791

PATIENT
  Age: 77 Year
  Sex: Male
  Weight: 82.4 kg

DRUGS (3)
  1. CARFILZOMIB [Suspect]
     Indication: PLASMA CELL MYELOMA
     Dosage: 54.3 MG (27 MG/M2, TWICE A WEEK X3 WEEKS Q 28 DAYS, INTRAVENOUS
     Route: 042
     Dates: start: 20090922, end: 20100907
  2. SINGULAIR [Concomitant]
  3. TOPROL (METOPROLOL SUCCINATE) [Concomitant]

REACTIONS (1)
  - Gastrointestinal viral infection [None]
